FAERS Safety Report 9645103 (Version 1)
Quarter: 2013Q4

REPORT INFORMATION
  Report Type: Report from Study
  Country: US (occurrence: US)
  Receive Date: 20131025
  Receipt Date: 20131025
  Transmission Date: 20140711
  Serious: Yes (Other)
  Sender: FDA-Public Use
  Company Number: US-JNJFOC-20131011656

PATIENT
  Sex: Female
  Weight: 102.51 kg

DRUGS (3)
  1. REMICADE [Suspect]
     Indication: RHEUMATOID NODULE
     Route: 042
     Dates: start: 1999, end: 201307
  2. REMICADE [Suspect]
     Indication: PSORIATIC ARTHROPATHY
     Route: 042
     Dates: start: 1999, end: 201307
  3. METHOTREXATE [Concomitant]
     Indication: PSORIATIC ARTHROPATHY
     Dosage: 0.5 MG SOLUTION WEEKLY
     Route: 065
     Dates: end: 201306

REACTIONS (3)
  - Psoriatic arthropathy [Not Recovered/Not Resolved]
  - Fibromyalgia [Not Recovered/Not Resolved]
  - Skin haemorrhage [Not Recovered/Not Resolved]
